FAERS Safety Report 9012132 (Version 1)
Quarter: 2013Q1

REPORT INFORMATION
  Report Type: Spontaneous
  Country: US (occurrence: US)
  Receive Date: 20130114
  Receipt Date: 20130114
  Transmission Date: 20140127
  Serious: No
  Sender: FDA-Public Use
  Company Number: US-PFIZER INC-2013014772

PATIENT
  Sex: Female

DRUGS (4)
  1. NICOTROL INHALER [Suspect]
     Indication: SMOKING CESSATION THERAPY
     Dosage: UNK, 3X/DAY
     Route: 055
     Dates: start: 20130101
  2. PRAVASTATIN [Concomitant]
     Indication: BLOOD CHOLESTEROL INCREASED
     Dosage: 20 MG, DAILY
  3. SINGULAIR [Concomitant]
     Indication: ASTHMA
     Dosage: 10 MG, DAILY
  4. ASMANEX [Concomitant]
     Indication: ASTHMA
     Dosage: UNK, DAILY

REACTIONS (2)
  - Dysgeusia [Not Recovered/Not Resolved]
  - Drug intolerance [Not Recovered/Not Resolved]
